FAERS Safety Report 22024903 (Version 1)
Quarter: 2023Q1

REPORT INFORMATION
  Report Type: Spontaneous
  Country: US (occurrence: US)
  Receive Date: 20230223
  Receipt Date: 20230223
  Transmission Date: 20230418
  Serious: No
  Sender: FDA-Public Use
  Company Number: US-ABBVIE-4287198

PATIENT
  Sex: Male

DRUGS (1)
  1. HUMIRA [Suspect]
     Active Substance: ADALIMUMAB
     Indication: Colitis ulcerative
     Route: 058

REACTIONS (5)
  - Injection site haemorrhage [Unknown]
  - Feeling abnormal [Unknown]
  - Incorrect dose administered [Not Recovered/Not Resolved]
  - Diarrhoea [Unknown]
  - Wrong technique in product usage process [Not Recovered/Not Resolved]
